FAERS Safety Report 9655523 (Version 1)
Quarter: 2013Q4

REPORT INFORMATION
  Report Type: Report from Study
  Country: US (occurrence: US)
  Receive Date: 20131029
  Receipt Date: 20131029
  Transmission Date: 20140711
  Serious: Yes (Other)
  Sender: FDA-Public Use
  Company Number: US-ROCHE-1295061

PATIENT
  Sex: Male

DRUGS (18)
  1. XOLAIR [Suspect]
     Indication: ASTHMA
     Route: 065
  2. ZOLOFT [Concomitant]
     Route: 065
  3. FOCALIN [Concomitant]
     Route: 065
  4. ZYRTEC [Concomitant]
     Route: 065
  5. SINGULAIR [Concomitant]
     Route: 065
  6. DUONEB [Concomitant]
     Route: 065
  7. ALBUTEROL INHALER [Concomitant]
     Route: 065
  8. ADVAIR [Concomitant]
     Dosage: 250/50 BID 12 HOURS
     Route: 065
  9. FLONASE [Concomitant]
     Dosage: 2 PUFFS PER NOSTRIL BID 12 HOURS
     Route: 065
  10. EPIPEN [Concomitant]
  11. PREDNISONE [Concomitant]
     Route: 065
  12. FISH OIL [Concomitant]
  13. ADVAIR [Concomitant]
     Dosage: 1 PUFF BID 12 HOURS
     Route: 065
  14. SINGULAIR [Concomitant]
     Route: 065
  15. ZYRTEC [Concomitant]
     Route: 048
  16. ZOLOFT [Concomitant]
     Route: 065
     Dates: end: 201309
  17. SPIRIVA [Concomitant]
     Route: 065
  18. ALBUTEROL [Concomitant]
     Dosage: AS NEEDED
     Route: 065

REACTIONS (5)
  - Asthma [Unknown]
  - Attention deficit/hyperactivity disorder [Unknown]
  - Failure to thrive [Unknown]
  - Bone development abnormal [Unknown]
  - Eczema [Unknown]
